FAERS Safety Report 5822655-7 (Version None)
Quarter: 2008Q3

REPORT INFORMATION
  Report Type: 
  Country: None (occurrence: None)
  Receive Date: 20080723
  Receipt Date: 20080723
  Transmission Date: 20090109
  Serious: No
  Sender: FDA-Public Use
  Company Number: None

PATIENT
  Sex: Female
  Weight: 42.6381 kg

DRUGS (1)
  1. TEGRETOL [Suspect]
     Indication: CONVULSION
     Dosage: ONCE 200 MG QID ORAL
     Route: 048

REACTIONS (5)
  - ANTICONVULSANT DRUG LEVEL ABNORMAL [None]
  - CONVULSION [None]
  - DIZZINESS [None]
  - NAUSEA [None]
  - VERTIGO [None]
